FAERS Safety Report 14107336 (Version 1)
Quarter: 2017Q4

REPORT INFORMATION
  Report Type: Spontaneous
  Country: FR (occurrence: FR)
  Receive Date: 20171019
  Receipt Date: 20171019
  Transmission Date: 20180321
  Serious: Yes (Hospitalization)
  Sender: FDA-Public Use
  Company Number: FR-ABBVIE-17P-056-2136012-00

PATIENT
  Age: 32 Year
  Sex: Male

DRUGS (5)
  1. TERCIAN [Suspect]
     Active Substance: CYAMEMAZINE
     Indication: SUICIDE ATTEMPT
     Dosage: FILM COATED
     Route: 048
     Dates: start: 20170815, end: 20170815
  2. DEPAKINE CHRONO [Suspect]
     Active Substance: VALPROATE SODIUM
     Indication: SUICIDE ATTEMPT
     Dosage: EXTENDED RELEASE
     Route: 048
     Dates: start: 20170815, end: 20170815
  3. LOXAPAC [Suspect]
     Active Substance: LOXAPINE SUCCINATE
     Indication: SUICIDE ATTEMPT
     Dosage: FILM COATED
     Route: 048
     Dates: start: 20170815, end: 20170815
  4. ATARAX [Suspect]
     Active Substance: HYDROXYZINE HYDROCHLORIDE
     Indication: SUICIDE ATTEMPT
     Dosage: FILM COATED
     Route: 048
     Dates: start: 20170815, end: 20170815
  5. NOZINAN [Suspect]
     Active Substance: LEVOMEPROMAZINE
     Indication: SUICIDE ATTEMPT
     Route: 048
     Dates: start: 20170815, end: 20170815

REACTIONS (3)
  - Hyperlactacidaemia [Recovered/Resolved]
  - Somnolence [Recovered/Resolved]
  - Intentional overdose [Recovered/Resolved]

NARRATIVE: CASE EVENT DATE: 20170815
